FAERS Safety Report 10569052 (Version 3)
Quarter: 2015Q1

REPORT INFORMATION
  Report Type: Spontaneous
  Country: US (occurrence: US)
  Receive Date: 20141106
  Receipt Date: 20150218
  Transmission Date: 20150720
  Serious: Yes (Other)
  Sender: FDA-Public Use
  Company Number: US-BAYER-2014-160224

PATIENT
  Age: 32 Year
  Sex: Female

DRUGS (1)
  1. MIRENA [Suspect]
     Active Substance: LEVONORGESTREL
     Indication: CONTRACEPTION
     Dosage: 20 MCG/24HR, CONT
     Route: 015
     Dates: start: 20111025, end: 20140806

REACTIONS (9)
  - Vaginal discharge [Recovered/Resolved]
  - Pelvic pain [Recovered/Resolved]
  - Product use issue [None]
  - Device dislocation [Recovered/Resolved]
  - Genital haemorrhage [Recovered/Resolved]
  - Pain [Recovered/Resolved]
  - Bacterial vaginosis [Recovered/Resolved]
  - Uterine polyp [Recovered/Resolved]
  - Abdominal pain lower [Recovered/Resolved]

NARRATIVE: CASE EVENT DATE: 20111025
